FAERS Safety Report 4602330-7 (Version None)
Quarter: 2005Q2

REPORT INFORMATION
  Report Type: 
  Country: None (occurrence: None)
  Receive Date: 20050215
  Receipt Date: 20041027
  Transmission Date: 20051028
  Serious: Yes (Hospitalization)
  Sender: FDA-Public Use
  Company Number: 375466

PATIENT
  Age: 52 Year
  Sex: Female

DRUGS (2)
  1. PEGASYS [Suspect]
     Indication: DRUG USE FOR UNKNOWN INDICATION
     Dosage: SUBCUTANEOUS
     Route: 058
     Dates: start: 20040416
  2. COPEGUS [Suspect]
     Indication: DRUG USE FOR UNKNOWN INDICATION
     Dosage: ORAL
     Route: 048
     Dates: start: 20040416

REACTIONS (21)
  - ALOPECIA [None]
  - ANAEMIA [None]
  - APPETITE DISORDER [None]
  - BIPOLAR DISORDER [None]
  - BLISTER [None]
  - CONTUSION [None]
  - DECREASED APPETITE [None]
  - DEPRESSION [None]
  - DIARRHOEA [None]
  - DYSPEPSIA [None]
  - EMOTIONAL DISORDER [None]
  - FALL [None]
  - GENITAL RASH [None]
  - HALLUCINATION [None]
  - NAUSEA [None]
  - PRURITUS [None]
  - PYREXIA [None]
  - RASH [None]
  - RASH GENERALISED [None]
  - SKIN ULCER [None]
  - WEIGHT DECREASED [None]
